FAERS Safety Report 25196947 (Version 3)
Quarter: 2025Q2

REPORT INFORMATION
  Report Type: Spontaneous
  Country: JP (occurrence: JP)
  Receive Date: 20250415
  Receipt Date: 20250603
  Transmission Date: 20250716
  Serious: Yes (Death, Other)
  Sender: SANOFI AVENTIS
  Company Number: JP-SAKK-2025SA106433AA

PATIENT
  Age: 70 Year
  Sex: Male

DRUGS (2)
  1. ALPROLIX [Suspect]
     Active Substance: EFTRENONACOG ALFA
     Indication: Factor IX deficiency
     Dosage: 2000 IU, QW
     Route: 041
     Dates: start: 2017
  2. ALPROLIX [Suspect]
     Active Substance: EFTRENONACOG ALFA
     Indication: Factor IX deficiency
     Dosage: 2000 IU, QW
     Route: 041
     Dates: start: 2017

REACTIONS (3)
  - Gastric cancer recurrent [Fatal]
  - Malignant ascites [Fatal]
  - General physical health deterioration [Fatal]

NARRATIVE: CASE EVENT DATE: 20250201
